FAERS Safety Report 11866542 (Version 1)
Quarter: 2015Q4

REPORT INFORMATION
  Report Type: Spontaneous
  Country: FR (occurrence: FR)
  Receive Date: 20151224
  Receipt Date: 20151224
  Transmission Date: 20160305
  Serious: Yes (Hospitalization)
  Sender: FDA-Public Use
  Company Number: FR-ACCORD-036525

PATIENT
  Age: 72 Year
  Sex: Male

DRUGS (3)
  1. CARBOPLATIN. [Concomitant]
     Active Substance: CARBOPLATIN
  2. ERBITUX [Concomitant]
     Active Substance: CETUXIMAB
  3. FLUORORURACIL ACCORD [Suspect]
     Active Substance: FLUOROURACIL
     Indication: SQUAMOUS CELL CARCINOMA
     Dosage: FIRST COURSE PERFORMED ON 19-JUL-2015
     Route: 042
     Dates: end: 20150722

REACTIONS (7)
  - Leukocytosis [Recovered/Resolved]
  - Malaise [None]
  - Tachycardia [None]
  - Troponin increased [None]
  - Cardiac flutter [Recovered/Resolved]
  - Dyspnoea [None]
  - Pyrexia [None]

NARRATIVE: CASE EVENT DATE: 20150722
